FAERS Safety Report 10744225 (Version 2)
Quarter: 2015Q1

REPORT INFORMATION
  Report Type: Spontaneous
  Country: US (occurrence: None)
  Receive Date: 20150126
  Receipt Date: 20150203
  Transmission Date: 20150721
  Serious: Yes (Hospitalization)
  Sender: FDA-Public Use
  Company Number: 20150016L

PATIENT
  Age: 8 Week
  Sex: Male

DRUGS (2)
  1. DEXAMETHASONE SODIUM PHOSPHATE. [Suspect]
     Active Substance: DEXAMETHASONE SODIUM PHOSPHATE
     Indication: HISTIOCYTOSIS HAEMATOPHAGIC
     Dosage: DOSE NOT PROVIDED?
  2. CYCLOSPORINE. [Suspect]
     Active Substance: CYCLOSPORINE
     Indication: HISTIOCYTOSIS HAEMATOPHAGIC
     Dosage: DOSE NOT REPORTED, 8 WEEKS

REACTIONS (11)
  - Hydrocephalus [None]
  - Systemic candida [None]
  - Pancytopenia [None]
  - Septic shock [None]
  - Multi-organ failure [None]
  - Hypofibrinogenaemia [None]
  - Partial seizures [None]
  - Encephalitis fungal [None]
  - Encephalopathy [None]
  - Transaminases increased [None]
  - Epilepsy [None]
